FAERS Safety Report 7914674-1 (Version None)
Quarter: 2011Q4

REPORT INFORMATION
  Report Type: 
  Country: None (occurrence: None)
  Receive Date: 20111115
  Receipt Date: 20111108
  Transmission Date: 20120403
  Serious: Yes (Hospitalization, Other)
  Sender: FDA-Public Use
  Company Number: PHHY2011FI099431

PATIENT
  Age: 24 Year
  Sex: Female
  Weight: 116 kg

DRUGS (2)
  1. CLOZAPINE [Suspect]
     Dosage: INCREASED BY 25 MG TWO TIMES A WEEK
  2. CLOZAPINE [Suspect]
     Indication: SCHIZOPHRENIA
     Dosage: 250 MG IN THE EVENING

REACTIONS (3)
  - SELF-MEDICATION [None]
  - TREATMENT NONCOMPLIANCE [None]
  - POISONING [None]
